FAERS Safety Report 17366898 (Version 1)
Quarter: 2020Q1

REPORT INFORMATION
  Report Type: Spontaneous
  Country: NL (occurrence: NL)
  Receive Date: 20200204
  Receipt Date: 20200204
  Transmission Date: 20200409
  Serious: Yes (Other)
  Sender: FDA-Public Use
  Company Number: NL-MYLANLABS-2020M1012600

PATIENT
  Age: 67 Year
  Sex: Female
  Weight: 44 kg

DRUGS (2)
  1. VERAPAMIL [Suspect]
     Active Substance: VERAPAMIL HYDROCHLORIDE
     Indication: PRODUCT USED FOR UNKNOWN INDICATION
     Dosage: UNK
  2. PANCLAMOX [Interacting]
     Active Substance: AMOXICILLIN\CLARITHROMYCIN\PANTOPRAZOLE
     Indication: GASTRIC INFECTION
     Dosage: MAAGSAPRESISTENTE TABLET, 1000/500/40 MG (MILLIGRAM)
     Dates: start: 2019, end: 20191216

REACTIONS (6)
  - Dyspnoea [Unknown]
  - Haematoma [Recovered/Resolved]
  - Fatigue [Unknown]
  - Blood potassium decreased [Unknown]
  - Drug interaction [Recovering/Resolving]
  - Syncope [Recovering/Resolving]

NARRATIVE: CASE EVENT DATE: 20191210
